FAERS Safety Report 8192569-9 (Version None)
Quarter: 2012Q1

REPORT INFORMATION
  Report Type: 
  Country: None (occurrence: None)
  Receive Date: 20120308
  Receipt Date: 20120229
  Transmission Date: 20120608
  Serious: Yes (Other)
  Sender: FDA-Public Use
  Company Number: CA-TEVA-325387USA

PATIENT
  Sex: Female

DRUGS (13)
  1. COPAXONE [Suspect]
     Indication: MULTIPLE SCLEROSIS
     Route: 058
     Dates: start: 20001013
  2. CITALOPRAM HYDROBROMIDE [Concomitant]
  3. ALPRAZOLAM [Concomitant]
  4. GABAPENTIN [Concomitant]
  5. ERGOCALCIFEROL [Concomitant]
  6. ZOPICLONE [Concomitant]
  7. OXYCODONE HYDROCHLORIDE [Concomitant]
  8. CALCIUM [Concomitant]
  9. CELECOXIB [Concomitant]
  10. GLUCOSAMINE [Concomitant]
  11. PRIMROSE OIL [Concomitant]
  12. NITROPUROTOIN [Concomitant]
  13. FLAVOXATE HYDROCHLORIDE [Concomitant]

REACTIONS (1)
  - SUICIDAL IDEATION [None]
